FAERS Safety Report 22944942 (Version 5)
Quarter: 2023Q4

REPORT INFORMATION
  Report Type: Spontaneous
  Country: US (occurrence: US)
  Receive Date: 20230914
  Receipt Date: 20231020
  Transmission Date: 20240110
  Serious: No
  Sender: FDA-Public Use
  Company Number: US-JNJFOC-20230926058

PATIENT
  Age: 29 Year
  Sex: Female

DRUGS (2)
  1. STELARA [Suspect]
     Active Substance: USTEKINUMAB
     Indication: Product used for unknown indication
     Route: 058
  2. STELARA [Suspect]
     Active Substance: USTEKINUMAB
     Dosage: STRENGTH: 90.00 MG/ML
     Route: 058

REACTIONS (7)
  - Syringe issue [Unknown]
  - Accidental exposure to product [Unknown]
  - Administration site rash [Recovered/Resolved]
  - Injection site nodule [Recovered/Resolved]
  - Skin warm [Recovered/Resolved]
  - Product dose omission issue [Unknown]
  - Symptom recurrence [Unknown]

NARRATIVE: CASE EVENT DATE: 20230911
